FAERS Safety Report 23386392 (Version 3)
Quarter: 2024Q1

REPORT INFORMATION
  Report Type: Spontaneous
  Country: US (occurrence: US)
  Receive Date: 20240110
  Receipt Date: 20240228
  Transmission Date: 20240410
  Serious: Yes (Other)
  Sender: FDA-Public Use
  Company Number: US-DRL-USA-SPO/USA/24/0000360

PATIENT
  Age: 36 Year
  Sex: Female

DRUGS (1)
  1. ZENATANE [Suspect]
     Active Substance: ISOTRETINOIN
     Indication: Product used for unknown indication
     Dates: start: 20231129, end: 20231225

REACTIONS (4)
  - Drug exposure before pregnancy [Unknown]
  - Exposure during pregnancy [Unknown]
  - Treatment noncompliance [Unknown]
  - Pain [Unknown]
